FAERS Safety Report 26119178 (Version 1)
Quarter: 2025Q4

REPORT INFORMATION
  Report Type: Spontaneous
  Country: US (occurrence: US)
  Receive Date: 20251204
  Receipt Date: 20251204
  Transmission Date: 20260118
  Serious: No
  Sender: ACCORD
  Company Number: US-Accord-494281

PATIENT
  Age: 50 Year
  Sex: Male

DRUGS (1)
  1. LEVOTHYROXINE SODIUM [Suspect]
     Active Substance: LEVOTHYROXINE SODIUM
     Indication: Product used for unknown indication
     Dosage: STRENGTH: 150 MCG, ONE TABLET BY MOUTH DAILY IN THE MORNING BEFORE BREAKFAST
     Route: 048
     Dates: start: 20250627

REACTIONS (4)
  - Dizziness [Recovered/Resolved]
  - Euphoric mood [Recovered/Resolved]
  - Bradyphrenia [Unknown]
  - Product substitution issue [Unknown]

NARRATIVE: CASE EVENT DATE: 20250101
